FAERS Safety Report 8719780 (Version 2)
Quarter: 2012Q4

REPORT INFORMATION
  Report Type: 
  Country: CH (occurrence: CH)
  Receive Date: 20120813
  Receipt Date: 20121004
  Transmission Date: 20130627
  Serious: Yes (Death)
  Sender: FDA-Public Use
  Company Number: CH-JNJFOC-20120803995

PATIENT
  Age: 45 Year
  Sex: Male
  Weight: 95 kg

DRUGS (16)
  1. INVEGA [Suspect]
     Indication: SCHIZOPHRENIA
     Route: 048
     Dates: end: 20120727
  2. INVEGA [Suspect]
     Indication: SCHIZOPHRENIA
     Route: 048
     Dates: start: 20120217
  3. INVEGA [Suspect]
     Indication: SCHIZOPHRENIA
     Route: 048
     Dates: start: 20120403
  4. ZYPREXA [Suspect]
     Indication: PRODUCT USED FOR UNKNOWN INDICATION
     Route: 065
  5. ZYPREXA [Suspect]
     Indication: PRODUCT USED FOR UNKNOWN INDICATION
     Route: 065
     Dates: start: 20120403
  6. ZYPREXA [Suspect]
     Indication: PRODUCT USED FOR UNKNOWN INDICATION
     Route: 065
     Dates: start: 200106
  7. FLOXYFRAL [Suspect]
     Indication: PRODUCT USED FOR UNKNOWN INDICATION
     Route: 065
     Dates: start: 200106
  8. ASPIRIN CARDIO [Concomitant]
     Indication: PROPHYLAXIS
     Route: 065
     Dates: start: 200509
  9. NEBILET [Concomitant]
     Indication: HYPERTENSION
     Route: 065
     Dates: start: 201005
  10. SIMVASTATIN [Concomitant]
     Indication: DYSLIPIDAEMIA
     Route: 065
     Dates: start: 200604
  11. SIMVASTATIN [Concomitant]
     Indication: DYSLIPIDAEMIA
     Route: 065
     Dates: start: 201105
  12. EZETROL [Concomitant]
     Route: 065
     Dates: start: 200604
  13. GLICLAZIDE [Concomitant]
     Route: 065
     Dates: start: 200708
  14. AVANDAMET [Concomitant]
     Route: 065
     Dates: start: 200609
  15. AVANDAMET [Concomitant]
     Route: 065
     Dates: start: 201010
  16. JANUMET [Concomitant]
     Route: 065
     Dates: start: 201010

REACTIONS (1)
  - Sudden cardiac death [Fatal]
